FAERS Safety Report 17973296 (Version 1)
Quarter: 2020Q3

REPORT INFORMATION
  Report Type: Spontaneous
  Country: PL (occurrence: PL)
  Receive Date: 20200702
  Receipt Date: 20200702
  Transmission Date: 20201103
  Serious: Yes (Hospitalization, Other)
  Sender: FDA-Public Use
  Company Number: PL-TEVA-2020-PL-1796415

PATIENT
  Age: 44 Year
  Sex: Male

DRUGS (9)
  1. RITUXIMAB. [Suspect]
     Active Substance: RITUXIMAB
     Indication: B-CELL LYMPHOMA
     Dosage: 1ST LINE, 8 R?CHOP,
     Route: 065
     Dates: start: 201610, end: 201703
  2. RITUXIMAB. [Suspect]
     Active Substance: RITUXIMAB
     Dosage: 2ND LINE, 6 X BR (BENDAMUSTIN?RITUXIMAB CHEMOTHERAPY), 375MG/M2 DAY 1
     Route: 065
  3. BENDAMUSTINE HYDROCHLORIDE. [Suspect]
     Active Substance: BENDAMUSTINE HYDROCHLORIDE
     Indication: B-CELL LYMPHOMA
     Dosage: 2ND LINE, 6 BR BENDAMUSTIN AND RITUXIMAB CHEMOTHERAPY 90MG/M2 DAY 1 AND 2 CYCLIC
     Route: 042
  4. DOXORUBICIN HYDROCHLORIDE. [Suspect]
     Active Substance: DOXORUBICIN HYDROCHLORIDE
     Indication: B-CELL LYMPHOMA
     Dosage: 1ST LINE, 8 R?CHOP
     Route: 065
     Dates: start: 201610, end: 201703
  5. CYCLOPHOSPHAMIDE. [Suspect]
     Active Substance: CYCLOPHOSPHAMIDE
     Dosage: 1ST LINE, 8 R?CHOP
     Route: 065
     Dates: start: 201610, end: 201703
  6. RITUXIMAB. [Suspect]
     Active Substance: RITUXIMAB
     Dosage: MONOTHERAPY, EVERY 2 MONTHS FOR 2 YEARS
     Route: 065
  7. PREDNISOLONE. [Suspect]
     Active Substance: PREDNISOLONE
     Indication: B-CELL LYMPHOMA
     Dosage: 1ST LINE, 8 R?CHOP
     Route: 065
     Dates: start: 201610, end: 201703
  8. CYCLOPHOSPHAMIDE. [Suspect]
     Active Substance: CYCLOPHOSPHAMIDE
     Indication: B-CELL LYMPHOMA
     Dosage: 1ST LINE, 8 R?CHOP
     Route: 065
     Dates: start: 201610, end: 201703
  9. VINCRISTINE [Suspect]
     Active Substance: VINCRISTINE
     Indication: B-CELL LYMPHOMA
     Dosage: 1ST LINE, 8 R?CHOP
     Route: 065
     Dates: start: 201610, end: 201703

REACTIONS (2)
  - Prescribed underdose [Unknown]
  - Cellulitis [Unknown]
